FAERS Safety Report 23794357 (Version 1)
Quarter: 2024Q2

REPORT INFORMATION
  Report Type: Spontaneous
  Country: US (occurrence: None)
  Receive Date: 20240426
  Receipt Date: 20240426
  Transmission Date: 20240715
  Serious: Yes (Hospitalization)
  Sender: FDA-Public Use
  Company Number: None

PATIENT
  Age: 62 Year
  Sex: Male
  Weight: 85 kg

DRUGS (2)
  1. QUETIAPINE FUMARATE [Suspect]
     Active Substance: QUETIAPINE FUMARATE
     Indication: Schizophrenia
     Dosage: 0.5 MG AT BEDTIME PO?
     Route: 048
     Dates: start: 20220913, end: 20230424
  2. OLANZAPINE [Suspect]
     Active Substance: OLANZAPINE
     Indication: Schizophrenia
     Dosage: 2 TAB AT BEDTIME PO?
     Route: 048
     Dates: start: 20220518, end: 20230515

REACTIONS (3)
  - Hyponatraemia [None]
  - Neuroleptic malignant syndrome [None]
  - Rhabdomyolysis [None]

NARRATIVE: CASE EVENT DATE: 20230421
